FAERS Safety Report 10724512 (Version 4)
Quarter: 2022Q1

REPORT INFORMATION
  Report Type: Spontaneous
  Country: US (occurrence: US)
  Receive Date: 20150120
  Receipt Date: 20220111
  Transmission Date: 20220424
  Serious: No
  Sender: FDA-Public Use
  Company Number: US-PFIZER INC-2014134311

PATIENT
  Age: 55 Year
  Sex: Female
  Weight: 72 kg

DRUGS (13)
  1. LYRICA [Suspect]
     Active Substance: PREGABALIN
     Indication: Diabetic neuropathy
     Dosage: 150 MG, 2X/DAY (ONE IN MORNING AND ONE AT NIGHT)
     Route: 048
     Dates: start: 20100126
  2. LYRICA [Suspect]
     Active Substance: PREGABALIN
     Dosage: 150 MG, DAILY
     Dates: start: 2014
  3. ASPIRIN [Concomitant]
     Active Substance: ASPIRIN
     Dosage: 81 MG, UNK
     Route: 048
  4. CALCIUM\VITAMIN D [Concomitant]
     Active Substance: CALCIUM\VITAMIN D
     Dosage: UNK
  5. LISINOPRIL [Concomitant]
     Active Substance: LISINOPRIL
     Indication: Essential hypertension
     Dosage: 10 MG, DAILY
     Route: 048
     Dates: start: 20140805
  6. ESTRADIOL [Concomitant]
     Active Substance: ESTRADIOL
     Indication: Routine health maintenance
     Dosage: 0.5 MG (ONE-HALF TABLET), DAILY
     Route: 048
     Dates: start: 20130520
  7. METFORMIN [Concomitant]
     Active Substance: METFORMIN HYDROCHLORIDE
     Indication: Type 2 diabetes mellitus
     Dosage: 500 MG, 2X/DAY
     Route: 048
     Dates: start: 20100211
  8. METFORMIN [Concomitant]
     Active Substance: METFORMIN HYDROCHLORIDE
     Indication: Routine health maintenance
  9. LISINOPRIL AND HYDROCHLOROTHIAZIDE [Concomitant]
     Active Substance: HYDROCHLOROTHIAZIDE\LISINOPRIL
     Indication: Hypertension
     Dosage: 1 DF, DAILY (LISINOPRIL: 20 MG, HYDROCHLOROTHIAZIDE: 25 MG )
     Route: 048
     Dates: start: 20150710
  10. LISINOPRIL AND HYDROCHLOROTHIAZIDE [Concomitant]
     Active Substance: HYDROCHLOROTHIAZIDE\LISINOPRIL
     Indication: Diabetes mellitus
  11. LEVAQUIN [Concomitant]
     Active Substance: LEVOFLOXACIN
     Indication: Pneumonia
     Dosage: 750 MG, DAILY
     Route: 048
     Dates: start: 20150825
  12. LEVAQUIN [Concomitant]
     Active Substance: LEVOFLOXACIN
     Indication: Genitourinary symptom
     Dosage: 500 MG DAILY
     Route: 048
     Dates: start: 20170422
  13. BENZONATATE [Concomitant]
     Active Substance: BENZONATATE
     Indication: Viral upper respiratory tract infection
     Dosage: 100 MG, 1 CAPSULE 2-3 TIMES DAILY AS DIRECTED
     Route: 048
     Dates: start: 20170422

REACTIONS (3)
  - Bronchitis [Unknown]
  - Intentional product use issue [Unknown]
  - Intentional product use issue [Unknown]

NARRATIVE: CASE EVENT DATE: 20140101
